FAERS Safety Report 18333890 (Version 1)
Quarter: 2020Q3

REPORT INFORMATION
  Report Type: Spontaneous
  Country: US (occurrence: US)
  Receive Date: 20200930
  Receipt Date: 20200930
  Transmission Date: 20201103
  Serious: No
  Sender: FDA-Public Use
  Company Number: None

PATIENT
  Age: 32 Year
  Sex: Male
  Weight: 90 kg

DRUGS (1)
  1. ALBUTEROL SULFAT HFA 90MCG [Suspect]
     Active Substance: ALBUTEROL SULFATE

REACTIONS (2)
  - Device malfunction [None]
  - Incorrect dose administered [None]

NARRATIVE: CASE EVENT DATE: 20200822
